FAERS Safety Report 23330604 (Version 1)
Quarter: 2023Q4

REPORT INFORMATION
  Report Type: Report from Study
  Country: CA (occurrence: CA)
  Receive Date: 20231222
  Receipt Date: 20231222
  Transmission Date: 20240110
  Serious: Yes (Hospitalization)
  Sender: FDA-Public Use
  Company Number: CA-TEVA-2023-CA-2920853

PATIENT
  Age: 67 Year

DRUGS (2)
  1. OCTREOTIDE [Suspect]
     Active Substance: OCTREOTIDE
     Indication: Carcinoid tumour
     Route: 030
     Dates: start: 20220314
  2. Sando LAR [Concomitant]
     Indication: Product used for unknown indication

REACTIONS (8)
  - Pain [Not Recovered/Not Resolved]
  - Scar [Unknown]
  - Abdominal pain upper [Not Recovered/Not Resolved]
  - Cholelithiasis [Not Recovered/Not Resolved]
  - Biliary colic [Unknown]
  - White blood cell count increased [Not Recovered/Not Resolved]
  - Nausea [Not Recovered/Not Resolved]
  - Flatulence [Unknown]

NARRATIVE: CASE EVENT DATE: 20230801
